FAERS Safety Report 23820718 (Version 2)
Quarter: 2024Q3

REPORT INFORMATION
  Report Type: Report from Study
  Country: JP (occurrence: JP)
  Receive Date: 20240506
  Receipt Date: 20240702
  Transmission Date: 20241017
  Serious: Yes (Hospitalization, Other)
  Sender: ABBVIE
  Company Number: JP-TAKEDA-2024TJP006247

PATIENT
  Age: 64 Year
  Sex: Male
  Weight: 67 kg

DRUGS (13)
  1. LEUPROLIDE ACETATE [Suspect]
     Active Substance: ISOPROPYL ALCOHOL\LEUPROLIDE ACETATE
     Indication: Bulbospinal muscular atrophy congenital
     Dosage: 11.25 MILLIGRAM, Q3MONTHS
     Route: 058
     Dates: start: 20171227
  2. HERBALS [Concomitant]
     Active Substance: HERBALS
     Indication: Constipation
     Dosage: 7.5 GRAM
     Route: 065
     Dates: start: 20230509, end: 20230709
  3. ZINC OXIDE [Concomitant]
     Active Substance: ZINC OXIDE
     Indication: Anal eczema
     Dosage: 100 GRAM
     Route: 065
     Dates: start: 20230410, end: 20230509
  4. BROMHEXINE HYDROCHLORIDE [Concomitant]
     Active Substance: BROMHEXINE HYDROCHLORIDE
     Indication: Bronchitis chronic
     Dosage: 4 MILLIGRAM
     Route: 065
     Dates: start: 20220530
  5. SODIUM PICOSULFATE [Concomitant]
     Active Substance: SODIUM PICOSULFATE
     Indication: Product used for unknown indication
     Dosage: 1 DOSAGE FORM
     Route: 065
     Dates: start: 20230405, end: 20230405
  6. LANSOPRAZOLE [Concomitant]
     Active Substance: LANSOPRAZOLE
     Indication: Gastrooesophageal reflux disease
     Dosage: 15 MILLIGRAM
     Route: 065
     Dates: start: 20230404, end: 20230411
  7. ROSUVASTATIN CALCIUM [Concomitant]
     Active Substance: ROSUVASTATIN CALCIUM
     Indication: Hypercholesterolaemia
     Dosage: 2.5 MILLIGRAM, QD
     Route: 065
     Dates: start: 20180625, end: 20200105
  8. SODIUM BICARBONATE\SODIUM PHOSPHATE, MONOBASIC [Concomitant]
     Active Substance: SODIUM BICARBONATE\SODIUM PHOSPHATE, MONOBASIC
     Indication: Product used for unknown indication
     Dosage: 1 DOSAGE FORM
     Route: 065
     Dates: start: 20230310, end: 20230310
  9. BISOLVON [Concomitant]
     Active Substance: BROMHEXINE HYDROCHLORIDE
     Indication: Product used for unknown indication
     Dosage: TIME INTERVAL: 0.33333333 DAYS: 4 MILLIGRAM, TID
     Route: 065
     Dates: start: 20180625, end: 20220529
  10. ROSUVASTATIN CALCIUM [Concomitant]
     Active Substance: ROSUVASTATIN CALCIUM
     Indication: Product used for unknown indication
     Dosage: 2.5 MILLIGRAM
     Route: 065
     Dates: start: 20200106
  11. SENNOSIDES A AND B [Concomitant]
     Active Substance: SENNOSIDES A AND B
     Indication: Product used for unknown indication
     Dosage: 24 MILLIGRAM
     Route: 065
     Dates: start: 20230405, end: 20230405
  12. SENNOSIDES A AND B [Concomitant]
     Active Substance: SENNOSIDES A AND B
     Indication: Product used for unknown indication
     Dosage: 12 MILLIGRAM
     Route: 065
     Dates: start: 20221202, end: 20221202
  13. POTASSIUM CHLORIDE\SODIUM BICARBONATE\SODIUM SULFATE [Concomitant]
     Active Substance: POTASSIUM CHLORIDE\SODIUM BICARBONATE\SODIUM SULFATE
     Indication: Constipation
     Dosage: 1 DOSAGE FORM
     Route: 065
     Dates: start: 20221202, end: 20221202

REACTIONS (1)
  - Rectal cancer [Recovering/Resolving]

NARRATIVE: CASE EVENT DATE: 20221201
